FAERS Safety Report 8814413 (Version 1)
Quarter: 2012Q4

REPORT INFORMATION
  Report Type: 
  Country: US (occurrence: US)
  Receive Date: 20120928
  Receipt Date: 20120928
  Transmission Date: 20130627
  Serious: Yes (Other)
  Sender: FDA-Public Use
  Company Number: US-PFIZER INC-2012238190

PATIENT
  Age: 31 Year
  Sex: Male

DRUGS (5)
  1. ZOLOFT [Suspect]
     Dosage: 100 mg, 1 (one) PM
  2. TRILEPTAL [Concomitant]
     Dosage: UNK
  3. TRAZODONE HYDROCHLORIDE [Concomitant]
     Dosage: UNK
  4. LEVOTHYROXINE SODIUM [Concomitant]
     Dosage: UNK
  5. CLONAZEPAM [Concomitant]
     Dosage: UNK

REACTIONS (2)
  - Psychotic disorder [Unknown]
  - Impaired work ability [Unknown]
